FAERS Safety Report 4507543-0 (Version None)
Quarter: 2004Q4

REPORT INFORMATION
  Report Type: 
  Country: None (occurrence: None)
  Receive Date: 20041018
  Receipt Date: 20040830
  Transmission Date: 20050328
  Serious: No
  Sender: FDA-Public Use
  Company Number: 208751

PATIENT
  Age: 58 Year
  Sex: Male

DRUGS (4)
  1. XOLAIR [Suspect]
     Indication: ASTHMA
     Dosage: 300 MG, Q4W, SUBCUTANEOUS
     Route: 058
     Dates: start: 20040701
  2. HYTRIN [Concomitant]
  3. DIOVAN [Concomitant]
  4. SYNTHROID [Concomitant]

REACTIONS (1)
  - INFLUENZA LIKE ILLNESS [None]
